FAERS Safety Report 4302852-2 (Version None)
Quarter: 2004Q1

REPORT INFORMATION
  Report Type: 
  Country: None (occurrence: None)
  Receive Date: 20040223
  Receipt Date: 20040223
  Transmission Date: 20041129
  Serious: Yes (Life-Threatening)
  Sender: FDA-Public Use
  Company Number: None

PATIENT
  Age: 75 Year
  Sex: Male
  Weight: 90.7194 kg

DRUGS (2)
  1. DEMEROL [Suspect]
     Indication: PAIN
     Dosage: 50MG Q6H INTRAVENOUS
     Route: 042
     Dates: start: 20030416, end: 20030416
  2. PHENERGAN [Suspect]
     Indication: PAIN
     Dosage: 50 MG Q6H INTRAVENOUS
     Route: 042
     Dates: start: 20030416, end: 20030416

REACTIONS (2)
  - COMA [None]
  - RESPIRATORY ARREST [None]
